FAERS Safety Report 8391568-1 (Version None)
Quarter: 2012Q2

REPORT INFORMATION
  Report Type: 
  Country: None (occurrence: None)
  Receive Date: 20120529
  Receipt Date: 20120523
  Transmission Date: 20120825
  Serious: Yes (Other)
  Sender: FDA-Public Use
  Company Number: US-PFIZER INC-2012094268

PATIENT
  Sex: Female
  Weight: 77 kg

DRUGS (5)
  1. PREMARIN [Suspect]
     Dosage: 1.25 MG, DAILY
     Dates: start: 19540101
  2. SINGULAIR [Concomitant]
     Indication: HYPERSENSITIVITY
     Dosage: UNK
  3. SYNTHROID [Concomitant]
     Indication: THYROID DISORDER
     Dosage: UNK
  4. XOLAIR [Concomitant]
     Indication: HYPERSENSITIVITY
     Dosage: UNK
  5. ATENOLOL [Concomitant]
     Indication: BLOOD PRESSURE ABNORMAL
     Dosage: UNK, DAILY

REACTIONS (5)
  - UTERINE DISORDER [None]
  - THYROID DISORDER [None]
  - INSOMNIA [None]
  - IRRITABILITY [None]
  - DRUG DOSE OMISSION [None]
